FAERS Safety Report 11170367 (Version 3)
Quarter: 2015Q2

REPORT INFORMATION
  Report Type: Spontaneous
  Country: JP (occurrence: JP)
  Receive Date: 20150608
  Receipt Date: 20150623
  Transmission Date: 20150821
  Serious: Yes (Life-Threatening, Hospitalization)
  Sender: FDA-Public Use
  Company Number: JP-BAYER-2015-307559

PATIENT
  Age: 38 Year
  Sex: Female

DRUGS (1)
  1. MIRENA [Suspect]
     Active Substance: LEVONORGESTREL
     Indication: DYSMENORRHOEA
     Dosage: 20 MCG/24HR,CONT
     Route: 015
     Dates: start: 201409

REACTIONS (7)
  - Peritoneal haemorrhage [Recovered/Resolved]
  - Ruptured ectopic pregnancy [Recovered/Resolved]
  - Ectopic pregnancy [Recovered/Resolved]
  - Pelvic haematoma [Recovered/Resolved]
  - Shock haemorrhagic [Recovered/Resolved]
  - Drug ineffective [Unknown]
  - Abdominal pain [Recovered/Resolved]

NARRATIVE: CASE EVENT DATE: 201505
